FAERS Safety Report 8809767 (Version 1)
Quarter: 2012Q4

REPORT INFORMATION
  Report Type: 
  Country: US (occurrence: US)
  Receive Date: 20120926
  Receipt Date: 20120926
  Transmission Date: 20130627
  Serious: Yes (Hospitalization)
  Sender: FDA-Public Use
  Company Number: US-MYLANLABS-2012S1019242

PATIENT
  Age: 22 Year
  Sex: Female

DRUGS (2)
  1. TYLENOL PM EXTRA STRENGTH [Suspect]
     Indication: OVERDOSE
     Dosage: 5g/250mg of paracetamol/diphenhydramine
     Route: 048
  2. CYCLOBENZAPRINE [Suspect]
     Indication: OVERDOSE
     Dosage: unknown amount
     Route: 048

REACTIONS (7)
  - Hepatotoxicity [Recovering/Resolving]
  - Overdose [Recovering/Resolving]
  - Nausea [None]
  - Vomiting [None]
  - Aspartate aminotransferase increased [None]
  - Alanine aminotransferase increased [None]
  - International normalised ratio increased [None]
